APPROVED DRUG PRODUCT: TOLTERODINE TARTRATE
Active Ingredient: TOLTERODINE TARTRATE
Strength: 4MG
Dosage Form/Route: CAPSULE, EXTENDED RELEASE;ORAL
Application: A204562 | Product #002 | TE Code: AB
Applicant: INVENTIA HEALTHCARE PRIVATE LTD
Approved: Aug 19, 2019 | RLD: No | RS: No | Type: RX